FAERS Safety Report 8184113-7 (Version None)
Quarter: 2012Q1

REPORT INFORMATION
  Report Type: 
  Country: None (occurrence: None)
  Receive Date: 20120305
  Receipt Date: 20120216
  Transmission Date: 20120608
  Serious: Yes (Death)
  Sender: FDA-Public Use
  Company Number: US-ROCHE-1032413

PATIENT
  Sex: Female
  Weight: 71.278 kg

DRUGS (5)
  1. PERCOCET [Concomitant]
  2. PHENERGAN [Concomitant]
  3. XELODA [Suspect]
     Dosage: DOSE REDUCED TO 1000 MG TWICE DAILY
     Route: 048
     Dates: end: 20120113
  4. XELODA [Suspect]
     Indication: METASTATIC GASTRIC CANCER
     Route: 048
     Dates: start: 20120103, end: 20120113
  5. CISPLATIN [Suspect]
     Indication: METASTATIC GASTRIC CANCER
     Dosage: DOSE: 1/3 DOSAGE ONCE EVERY WEEK
     Route: 042
     Dates: start: 20120103, end: 20120113

REACTIONS (3)
  - NAUSEA [None]
  - VOMITING [None]
  - DEATH [None]
